FAERS Safety Report 14975015 (Version 3)
Quarter: 2018Q3

REPORT INFORMATION
  Report Type: Spontaneous
  Country: DE (occurrence: DE)
  Receive Date: 20180605
  Receipt Date: 20180716
  Transmission Date: 20181010
  Serious: Yes (Hospitalization)
  Sender: FDA-Public Use
  Company Number: DE-PFIZER INC-2018225943

PATIENT
  Age: 88 Year
  Sex: Male

DRUGS (16)
  1. RAMIPRIL. [Suspect]
     Active Substance: RAMIPRIL
     Dosage: 2.5 MG, 2X/DAY  1?0?1?0
  2. VENLAFAXINE HCL [Suspect]
     Active Substance: VENLAFAXINE HYDROCHLORIDE
     Dosage: 150 MG, 1X/DAY 1?0?0?0
  3. QUETIAPINE. [Suspect]
     Active Substance: QUETIAPINE
     Dosage: 25 MG, 1X/DAY 0?0?1?0
     Route: 048
  4. METOPROLOL. [Suspect]
     Active Substance: METOPROLOL
     Dosage: 92 MG, 2X/DAY 1?0?1?0
     Route: 048
  5. PANTOPRAZOL [Concomitant]
     Active Substance: PANTOPRAZOLE SODIUM
     Dosage: 40 MG, 1X/DAY 1?0?0?0
  6. IPRATROPIUM BROMIDE. [Concomitant]
     Active Substance: IPRATROPIUM BROMIDE
     Dosage: 20, UNK, 3X/DAY
     Route: 055
  7. TAMSULOSIN [Concomitant]
     Active Substance: TAMSULOSIN
     Dosage: 0.4 MG, 1X/DAY 1?0?0?0
  8. FORMOTEROL [Concomitant]
     Active Substance: FORMOTEROL
     Dosage: UNK, 1X/DAY 1?0?0?0
     Route: 055
  9. MIRTAZAPINE. [Suspect]
     Active Substance: MIRTAZAPINE
     Dosage: 30 MG, 1X/DAY 0?0?1?0
  10. SIMVASTATIN. [Concomitant]
     Active Substance: SIMVASTATIN
     Dosage: 20 MG, 1X/DAY 0?0?1?0
  11. ROFLUMILAST. [Concomitant]
     Active Substance: ROFLUMILAST
     Dosage: 500 MG, 1X/DAY 1?0?0?0
  12. KALINOR?BRAUSETABLETTEN [Concomitant]
     Active Substance: POTASSIUM CARBONATE\POTASSIUM CITRATE
     Dosage: UNK, 2X/DAY 1?1?0?0
  13. BETAHISTINE [Concomitant]
     Active Substance: BETAHISTINE
     Dosage: 12 MG, 3X/DAY  1?1?1?0
  14. RIVAROXABAN [Concomitant]
     Active Substance: RIVAROXABAN
     Dosage: 20 MG, 1X/DAY 1?0?0?0
  15. SALBUTAMOL [Concomitant]
     Active Substance: ALBUTEROL
     Dosage: 3 GTT, 3X/DAY 3?3?3?0
     Route: 055
  16. TORASEMID [Suspect]
     Active Substance: TORSEMIDE
     Dosage: 10 MG, 1X/DAY 1?0?0?0

REACTIONS (3)
  - Drug prescribing error [Unknown]
  - Dehydration [Unknown]
  - Somnolence [Unknown]
